FAERS Safety Report 6860100-3 (Version None)
Quarter: 2010Q3

REPORT INFORMATION
  Report Type: 
  Country: None (occurrence: None)
  Receive Date: 20100720
  Receipt Date: 20100712
  Transmission Date: 20110219
  Serious: Yes (Other)
  Sender: FDA-Public Use
  Company Number: US-ABBOTT-10P-163-0656669-00

PATIENT
  Age: 13 Year
  Sex: Male

DRUGS (3)
  1. HYDROCHLOROTHIAZIDE [Suspect]
     Indication: HYPERCALCIURIA
  2. ANGIOTENSIN-CONVERTING ENZYME INHIBITOR [Concomitant]
     Indication: DENT'S DISEASE
  3. CITRATE [Concomitant]
     Indication: HYPERCALCIURIA

REACTIONS (2)
  - RENAL FAILURE ACUTE [None]
  - TUBULOINTERSTITIAL NEPHRITIS [None]
